FAERS Safety Report 4809976-1 (Version None)
Quarter: 2005Q4

REPORT INFORMATION
  Report Type: 
  Country: None (occurrence: None)
  Receive Date: 20051024
  Receipt Date: 20051024
  Transmission Date: 20060501
  Serious: Yes (Hospitalization)
  Sender: FDA-Public Use
  Company Number: None

PATIENT
  Age: 70 Year
  Sex: Male

DRUGS (11)
  1. ZOSYN [Suspect]
     Dosage: 3.375GM IV Q8H
     Route: 042
     Dates: start: 20050801, end: 20050804
  2. ACETAMINOPHEN [Concomitant]
  3. DIGOXIN [Concomitant]
  4. FUROSEMIDE [Concomitant]
  5. LISINOPRIL [Concomitant]
  6. MUPIROCIN 2% [Concomitant]
  7. OXYCODONE AND ACETAMINOPHEN [Concomitant]
  8. PIPERACILLIN/TAZOBACTAM [Concomitant]
  9. VANCOMYCIN [Concomitant]
  10. WARFARIN [Concomitant]
  11. SIMVASTATIN [Concomitant]

REACTIONS (2)
  - EOSINOPHIL COUNT INCREASED [None]
  - NEPHRITIS INTERSTITIAL [None]
